FAERS Safety Report 25474097 (Version 1)
Quarter: 2025Q2

REPORT INFORMATION
  Report Type: Spontaneous
  Country: US (occurrence: US)
  Receive Date: 20250624
  Receipt Date: 20250624
  Transmission Date: 20250717
  Serious: No
  Sender: KRAMER LABORATORIES
  Company Number: US-KRAMERLABS-2024-US-059523

PATIENT
  Age: 68 Year
  Sex: Female
  Weight: 85.73 kg

DRUGS (4)
  1. NIZORAL [Suspect]
     Active Substance: KETOCONAZOLE
     Indication: Product used for unknown indication
     Route: 061
     Dates: start: 2007, end: 20241104
  2. VITAMIN D [Concomitant]
     Active Substance: VITAMIN D NOS
  3. BIOTIN [Concomitant]
     Active Substance: BIOTIN
  4. POTASSIUM [Concomitant]
     Active Substance: POTASSIUM

REACTIONS (3)
  - Hair texture abnormal [Not Recovered/Not Resolved]
  - Trichorrhexis [Not Recovered/Not Resolved]
  - Product use issue [Recovered/Resolved]

NARRATIVE: CASE EVENT DATE: 20070101
